FAERS Safety Report 21784276 (Version 1)
Quarter: 2022Q4

REPORT INFORMATION
  Report Type: Spontaneous
  Country: US (occurrence: None)
  Receive Date: 20221226
  Receipt Date: 20221226
  Transmission Date: 20230113
  Serious: Yes (Life-Threatening, Hospitalization)
  Sender: FDA-Public Use
  Company Number: None

PATIENT
  Age: 90 Year
  Sex: Female
  Weight: 78.2 kg

DRUGS (1)
  1. APIXABAN [Suspect]
     Active Substance: APIXABAN
     Indication: Atrial fibrillation
     Dosage: FREQUENCY : TWICE A DAY;?
     Route: 048
     Dates: start: 20221104, end: 20221225

REACTIONS (6)
  - Facial paralysis [None]
  - Mental status changes [None]
  - Syncope [None]
  - Coma scale abnormal [None]
  - Cerebral haemorrhage [None]
  - Brain oedema [None]

NARRATIVE: CASE EVENT DATE: 20221225
